FAERS Safety Report 9297460 (Version 1)
Quarter: 2013Q2

REPORT INFORMATION
  Report Type: Spontaneous
  Country: IN (occurrence: IN)
  Receive Date: 20130520
  Receipt Date: 20130520
  Transmission Date: 20140414
  Serious: Yes (Other)
  Sender: FDA-Public Use
  Company Number: IN-SUN PHARMACEUTICAL INDUSTRIES LTD-2013SUN00594

PATIENT
  Age: 56 Year
  Sex: Female

DRUGS (4)
  1. FLUVOXAMINE MALEATE 25 MG TABLETS [Suspect]
     Indication: ANXIETY
     Dosage: 25- 50 MG
     Route: 065
  2. FLUVOXAMINE MALEATE 25 MG TABLETS [Suspect]
     Indication: DEPRESSION
  3. AMISULPRIDE [Suspect]
     Indication: ANXIETY
     Dosage: 50 MG/ DAY
     Route: 065
  4. AMISULPRIDE [Suspect]
     Indication: DEPRESSION
     Dosage: 100 MG/ DAY
     Route: 065

REACTIONS (1)
  - Tardive dyskinesia [Not Recovered/Not Resolved]
